FAERS Safety Report 7854163-6 (Version None)
Quarter: 2011Q4

REPORT INFORMATION
  Report Type: 
  Country: None (occurrence: None)
  Receive Date: 20111026
  Receipt Date: 20101109
  Transmission Date: 20120403
  Serious: No
  Sender: FDA-Public Use
  Company Number: US-BRISTOL-MYERS SQUIBB COMPANY-15375819

PATIENT

DRUGS (1)
  1. BUSPAR [Suspect]
     Dosage: RECEIVED FOR A MONTH

REACTIONS (2)
  - PARAESTHESIA [None]
  - ANXIETY [None]
